FAERS Safety Report 4645386-8 (Version None)
Quarter: 2005Q2

REPORT INFORMATION
  Report Type: 
  Country: None (occurrence: None)
  Receive Date: 20050331
  Receipt Date: 20041230
  Transmission Date: 20051028
  Serious: No
  Sender: FDA-Public Use
  Company Number: 03P-163-0221453-00

PATIENT
  Age: 68 Year
  Sex: Male
  Weight: 88.905 kg

DRUGS (12)
  1. HUMIRA [Suspect]
     Indication: RHEUMATOID ARTHRITIS
     Dosage: 40 MG, 1 IN 2 WK, SUBCUTANEOUS
     Route: 058
     Dates: start: 20030509
  2. PREDNISONE [Concomitant]
  3. BUCINDOLOL HYDROCHLORIDE [Concomitant]
  4. METOLAZONE [Concomitant]
  5. FUROSEMIDE [Concomitant]
  6. DIGOXIN [Concomitant]
  7. PANTOPRAZOLE SODIUM [Concomitant]
  8. PRAVASTATIN SODIUM [Concomitant]
  9. WARFARIN [Concomitant]
  10. LOSARTAN POTASSIUM [Concomitant]
  11. METOPROLOL SUCCINATE [Concomitant]
  12. ZETIA [Concomitant]

REACTIONS (3)
  - INJECTION SITE ERYTHEMA [None]
  - PROSTATE CANCER [None]
  - RASH GENERALISED [None]
